FAERS Safety Report 7927639 (Version 2)
Quarter: 2012Q4

REPORT INFORMATION
  Report Type: 
  Country: VE (occurrence: VE)
  Receive Date: 20110503
  Receipt Date: 20121224
  Transmission Date: 20130627
  Serious: Yes (Death, Hospitalization)
  Sender: FDA-Public Use
  Company Number: PHHY2011VE36276

PATIENT
  Age: 72 Year
  Sex: Male

DRUGS (4)
  1. DIOVAN [Suspect]
     Indication: HYPERTENSION
     Dosage: UNK UKN, UNK
     Route: 048
     Dates: start: 2000
  2. CONCOR [Concomitant]
     Indication: HYPERTENSION
     Dosage: UNK UKN, UNK
     Route: 048
     Dates: start: 2000
  3. PLAVIX [Concomitant]
     Dosage: UNK UKN, UNK
     Route: 048
     Dates: start: 2000
  4. LASIX [Concomitant]
     Dosage: UNK UKN, UNK
     Route: 048
     Dates: start: 2000

REACTIONS (4)
  - Respiratory arrest [Fatal]
  - Cardiomegaly [Not Recovered/Not Resolved]
  - Convulsion [Unknown]
  - Dyspnoea [Unknown]
